FAERS Safety Report 20305167 (Version 1)
Quarter: 2022Q1

REPORT INFORMATION
  Report Type: Spontaneous
  Country: PT (occurrence: PT)
  Receive Date: 20220106
  Receipt Date: 20220106
  Transmission Date: 20220423
  Serious: Yes (Other)
  Sender: FDA-Public Use
  Company Number: PT-009507513-2110PRT009061

PATIENT
  Age: 68 Year
  Sex: Female
  Weight: 73 kg

DRUGS (23)
  1. PACLITAXEL [Suspect]
     Active Substance: PACLITAXEL
     Indication: Product used for unknown indication
     Dosage: CYCLE 1 WITH ONLY CHEMOTHERAPY
     Dates: start: 20210407
  2. PACLITAXEL [Suspect]
     Active Substance: PACLITAXEL
     Dosage: CYCLE 2 WITH CARBOPLATIN AND PACLITAXEL (CHEMOTHERAPY) AND PEMBROLIZUMAB
     Dates: start: 20210430
  3. PACLITAXEL [Suspect]
     Active Substance: PACLITAXEL
     Dosage: CYCLE 3 WITH CARBOPLATIN AND PACLITAXEL (CHEMOTHERAPY) AND PEMBROLIZUMAB
     Dates: start: 20210519
  4. PACLITAXEL [Suspect]
     Active Substance: PACLITAXEL
     Dosage: CYCLE 4 WITH CARBOPLATIN AND PACLITAXEL (CHEMOTHERAPY) AND PEMBROLIZUMAB
     Dates: start: 20210727
  5. PACLITAXEL [Suspect]
     Active Substance: PACLITAXEL
     Dosage: CYCLE 5 WITH CARBOPLATIN AND PACLITAXEL (CHEMOTHERAPY) AND PEMBROLIZUMAB
     Dates: start: 20210818
  6. PACLITAXEL [Suspect]
     Active Substance: PACLITAXEL
     Dosage: CYCLE 6 WITH CARBOPLATIN AND PACLITAXEL (CHEMOTHERAPY) AND PEMBROLIZUMAB
     Dates: start: 20210908
  7. PACLITAXEL [Suspect]
     Active Substance: PACLITAXEL
     Dosage: CYCLE 7 WITH CARBOPLATIN AND PACLITAXEL (CHEMOTHERAPY) AND PEMBROLIZUMAB
     Dates: start: 20210929
  8. PACLITAXEL [Suspect]
     Active Substance: PACLITAXEL
     Dosage: CYCLE 8 WITH CARBOPLATIN (+) PACLITAXEL (CHEMOTHERAPY) AND PEMBROLIZUMAB
     Dates: start: 20211020
  9. PEMBROLIZUMAB [Suspect]
     Active Substance: PEMBROLIZUMAB
     Indication: Product used for unknown indication
     Dosage: 200 MILLIGRAM, Q3W; CYCLE 2 WITH CARBOPLATIN, PACLITAXEL, PEMBROLIZUMAB
     Dates: start: 20210430
  10. PEMBROLIZUMAB [Suspect]
     Active Substance: PEMBROLIZUMAB
     Dosage: 200 MILLIGRAM, Q3W; CYCLE 3 WITH CARBOPLATIN, PACLITAXEL, PEMBROLIZUMAB
     Dates: start: 20210519
  11. PEMBROLIZUMAB [Suspect]
     Active Substance: PEMBROLIZUMAB
     Dosage: 200 MILLIGRAM, Q3W; THE CYCLE 4 WITH CARBOPLATIN, PACLITAXEL, PEMBROLIZUMAB
     Dates: start: 20210727
  12. PEMBROLIZUMAB [Suspect]
     Active Substance: PEMBROLIZUMAB
     Dosage: 200 MILLIGRAM, Q3W; CYCLE 5 CARBOPLATIN, PACLITAXEL, PEMBROLIZUMAB
     Dates: start: 20210818
  13. PEMBROLIZUMAB [Suspect]
     Active Substance: PEMBROLIZUMAB
     Dosage: 200 MILLIGRAM, Q3W; CYCLE 6 CARBOPLATIN, PACLITAXEL, PEMBROLIZUMAB
     Dates: start: 20210908
  14. PEMBROLIZUMAB [Suspect]
     Active Substance: PEMBROLIZUMAB
     Dosage: 200 MILLIGRAM, Q3W; CYCLE 7 CARBOPLATIN, PACLITAXEL, PEMBROLIZUMAB
     Dates: start: 20210929
  15. PEMBROLIZUMAB [Suspect]
     Active Substance: PEMBROLIZUMAB
     Dosage: 200 MILLIGRAM, Q3W; CYCLE 8 CARBOPLATIN, PACLITAXEL, PEMBROLIZUMAB
     Dates: start: 20211020
  16. CARBOPLATIN [Suspect]
     Active Substance: CARBOPLATIN
     Indication: Product used for unknown indication
     Dosage: CYCLE 1 WITH ONLY CHEMOTHERAPY
     Dates: start: 20210407
  17. CARBOPLATIN [Suspect]
     Active Substance: CARBOPLATIN
     Dosage: CYCLE 2 WITH CARBOPLATIN AND PACLITAXEL (CHEMOTHERAPY) AND PEMBROLIZUMAB
     Dates: start: 20210430
  18. CARBOPLATIN [Suspect]
     Active Substance: CARBOPLATIN
     Dosage: CYCLE 3 WITH CARBOPLATIN AND PACLITAXEL (CHEMOTHERAPY) AND PEMBROLIZUMAB
     Dates: start: 20210519
  19. CARBOPLATIN [Suspect]
     Active Substance: CARBOPLATIN
     Dosage: CYCLE 4 WITH CARBOPLATIN AND PACLITAXEL (CHEMOTHERAPY) AND PEMBROLIZUMAB
     Dates: start: 20210727
  20. CARBOPLATIN [Suspect]
     Active Substance: CARBOPLATIN
     Dosage: CYCLE 5 WITH CARBOPLATIN AND PACLITAXEL (CHEMOTHERAPY) AND PEMBROLIZUMAB
     Dates: start: 20210818
  21. CARBOPLATIN [Suspect]
     Active Substance: CARBOPLATIN
     Dosage: CYCLE 6 WITH CARBOPLATIN AND PACLITAXEL (CHEMOTHERAPY) AND PEMBROLIZUMAB
     Dates: start: 20210908
  22. CARBOPLATIN [Suspect]
     Active Substance: CARBOPLATIN
     Dosage: CYCLE 7 WITH CARBOPLATIN AND PACLITAXEL (CHEMOTHERAPY) AND PEMBROLIZUMAB
     Dates: start: 20210929
  23. CARBOPLATIN [Suspect]
     Active Substance: CARBOPLATIN
     Dosage: CYCLE 8 WITH CARBOPLATIN AND PACLITAXEL (CHEMOTHERAPY) AND PEMBROLIZUMAB
     Dates: start: 20211020

REACTIONS (13)
  - Malignant neoplasm progression [Unknown]
  - Pulmonary calcification [Unknown]
  - Inappropriate schedule of product administration [Unknown]
  - Lymphadenopathy [Unknown]
  - Aortic arteriosclerosis [Unknown]
  - Cardiomegaly [Unknown]
  - Gynaecomastia [Unknown]
  - Pulmonary granuloma [Unknown]
  - Circumstance or information capable of leading to medication error [Unknown]
  - Biliary cyst [Unknown]
  - Hepatic calcification [Unknown]
  - Product use in unapproved indication [Unknown]
  - Immune-mediated hypothyroidism [Recovered/Resolved]

NARRATIVE: CASE EVENT DATE: 20210101
